FAERS Safety Report 7544496-5 (Version None)
Quarter: 2011Q2

REPORT INFORMATION
  Report Type: 
  Country: None (occurrence: None)
  Receive Date: 20110613
  Receipt Date: 20110603
  Transmission Date: 20111010
  Serious: Yes (Hospitalization)
  Sender: FDA-Public Use
  Company Number: US-RB-028580-11

PATIENT
  Sex: Female

DRUGS (4)
  1. SUBOXONE [Suspect]
     Indication: DRUG DEPENDENCE
     Dosage: UNKNOWN DOSING SCHEDULE
     Route: 060
     Dates: start: 20060101, end: 20081101
  2. SUBUTEX [Suspect]
     Route: 042
     Dates: start: 20110301
  3. SUBUTEX [Suspect]
     Route: 042
     Dates: end: 20110301
  4. SUBUTEX [Suspect]
     Indication: DRUG DEPENDENCE
     Route: 060
     Dates: start: 20081101

REACTIONS (3)
  - SEPTIC EMBOLUS [None]
  - INTENTIONAL DRUG MISUSE [None]
  - DRUG DIVERSION [None]
